FAERS Safety Report 26194156 (Version 1)
Quarter: 2025Q4

REPORT INFORMATION
  Report Type: Spontaneous
  Country: CA (occurrence: CA)
  Receive Date: 20251224
  Receipt Date: 20251224
  Transmission Date: 20260118
  Serious: Yes (Other)
  Sender: ROCHE
  Company Number: CA-ROCHE-10000465478

PATIENT
  Sex: Male

DRUGS (1)
  1. RITUXIMAB [Interacting]
     Active Substance: RITUXIMAB
     Indication: Diffuse large B-cell lymphoma

REACTIONS (17)
  - Acute kidney injury [Unknown]
  - Alanine aminotransferase increased [Unknown]
  - Anaemia [Unknown]
  - Aspartate aminotransferase increased [Unknown]
  - Blood bilirubin increased [Unknown]
  - Cerebral ischaemia [Unknown]
  - Cystitis noninfective [Unknown]
  - Drug interaction [Unknown]
  - Febrile neutropenia [Unknown]
  - Haematuria [Unknown]
  - Infection [Unknown]
  - Myalgia [Unknown]
  - Pulmonary embolism [Unknown]
  - Seizure [Unknown]
  - Thrombosis [Unknown]
  - Tumour lysis syndrome [Unknown]
  - Vomiting [Unknown]
